FAERS Safety Report 19994970 (Version 2)
Quarter: 2022Q3

REPORT INFORMATION
  Report Type: Spontaneous
  Country: JP (occurrence: JP)
  Receive Date: 20211025
  Receipt Date: 20220714
  Transmission Date: 20221026
  Serious: Yes (Hospitalization)
  Sender: FDA-Public Use
  Company Number: JP-GSKNCCC-CASE-01286836_AE-48589

PATIENT

DRUGS (8)
  1. ATOVAQUONE [Suspect]
     Active Substance: ATOVAQUONE
     Indication: Prophylaxis
     Dosage: UNK
     Dates: start: 20210821
  2. SAMSCA [Concomitant]
     Active Substance: TOLVAPTAN
     Dosage: UNK
  3. CORTRIL [Concomitant]
     Active Substance: HYDROCORTISONE
     Dosage: UNK
  4. BETAHISTINE MESILATE [Concomitant]
     Active Substance: BETAHISTINE MESILATE
     Dosage: UNK
  5. REBAMIPIDE [Concomitant]
     Active Substance: REBAMIPIDE
     Dosage: UNK
  6. LOXOPROFEN SODIUM [Concomitant]
     Active Substance: LOXOPROFEN SODIUM
     Dosage: UNK
  7. ALLELOCK [Concomitant]
     Active Substance: OLOPATADINE HYDROCHLORIDE
     Dosage: UNK
  8. GLYCYRON [Concomitant]
     Dosage: UNK
     Dates: start: 20210821

REACTIONS (3)
  - Jaundice [Unknown]
  - Liver disorder [Unknown]
  - Chromaturia [Recovered/Resolved]
